FAERS Safety Report 25329912 (Version 2)
Quarter: 2025Q2

REPORT INFORMATION
  Report Type: Spontaneous
  Country: US (occurrence: US)
  Receive Date: 20250519
  Receipt Date: 20250612
  Transmission Date: 20250717
  Serious: No
  Sender: SUNOVION
  Company Number: US-SMPA-2025SPA005635AA

PATIENT

DRUGS (2)
  1. GEMTESA [Suspect]
     Active Substance: VIBEGRON
     Indication: Product used for unknown indication
     Route: 048
  2. LOSARTAN [Concomitant]
     Active Substance: LOSARTAN
     Indication: Blood pressure abnormal
     Route: 065

REACTIONS (2)
  - Hypersensitivity [Unknown]
  - Urticaria [Unknown]
